FAERS Safety Report 10362336 (Version 1)
Quarter: 2014Q1

REPORT INFORMATION
  Report Type: Spontaneous
  Country: US (occurrence: None)
  Receive Date: 20140306
  Receipt Date: 20140306
  Transmission Date: 20141002
  Serious: Yes (Other)
  Sender: FDA-Public Use
  Company Number: 163-21880-13051322

PATIENT
  Age: 45 Year
  Sex: Female

DRUGS (18)
  1. REVLIMID (LENALIDOMIDE) (25 MILLIGRAM, CAPSULES) [Suspect]
     Indication: PLASMA CELL MYELOMA
     Route: 048
     Dates: start: 20130420, end: 20130425
  2. CYCLOPHOSPHAMIDE (UNKNOWN) [Suspect]
     Indication: PRODUCT USED FOR UNKNOWN INDICATION
     Route: 048
  3. VELCADE (BORTEZOMIB) (UNKNOWN) [Suspect]
     Indication: PRODUCT USED FOR UNKNOWN INDICATION
  4. DEXAMETHASONE (UNKNOWN) [Concomitant]
  5. ALLOPURINOL (UNKNOWN) [Concomitant]
  6. ONDANSETRON HCL (ONDANSETRON HYDROCHLORIDE) (UNKNOWN) [Concomitant]
  7. LORAZEPAM (UNKNOWN) [Concomitant]
  8. ACYCLOVIR (UNKNOWN) [Concomitant]
  9. PROCHLORPERAZINE (UNKNOWN) [Concomitant]
  10. CALCIUM CARBONATE (UNKNOWN) [Concomitant]
  11. VITAMIN D3 (COLECALCIFEROL) (UNKNOWN) [Concomitant]
  12. METHADONE (TABLETS) [Concomitant]
  13. MORPHINE (TABLETS) [Concomitant]
  14. OXYCODONE/ACETAMINOPHEN (OXYCOCET) (TABLETS) [Concomitant]
  15. ZOLPIDEM (TABLETS) [Concomitant]
  16. OXYCONTIN (OXYCODONE HYDROCHLORIDE) (TABLETS) [Concomitant]
  17. OXYCODONE (TABLETS) [Concomitant]
  18. ALBUTEROL (SALBUTAMOL) (UNKNOWN) [Concomitant]

REACTIONS (5)
  - Platelet count decreased [None]
  - Rash pruritic [None]
  - Neutrophil count decreased [None]
  - Haemoglobin decreased [None]
  - White blood cell count decreased [None]
